FAERS Safety Report 8997093 (Version 1)
Quarter: 2013Q1

REPORT INFORMATION
  Report Type: Spontaneous
  Country: US (occurrence: None)
  Receive Date: 20130102
  Receipt Date: 20130102
  Transmission Date: 20140127
  Serious: Yes (Other)
  Sender: FDA-Public Use
  Company Number: None

PATIENT
  Age: 78 Year
  Sex: Male
  Weight: 74.84 kg

DRUGS (1)
  1. CETIRIZINE HCL [Suspect]
     Indication: MULTIPLE ALLERGIES
     Dosage: 10 MG DAILY PO
     Route: 048
     Dates: start: 20121204, end: 20121228

REACTIONS (1)
  - Epistaxis [None]
